FAERS Safety Report 9699279 (Version 2)
Quarter: 2015Q3

REPORT INFORMATION
  Report Type: Spontaneous
  Country: US (occurrence: US)
  Receive Date: 20131120
  Receipt Date: 20150803
  Transmission Date: 20151125
  Serious: No
  Sender: FDA-Public Use
  Company Number: US-GILEAD-2008-0015318

PATIENT
  Age: 52 Year
  Sex: Male
  Weight: 99.79 kg

DRUGS (8)
  1. LETAIRIS [Suspect]
     Active Substance: AMBRISENTAN
     Indication: PULMONARY ARTERIAL HYPERTENSION
     Route: 048
     Dates: start: 20071220, end: 20080207
  2. LASIX [Concomitant]
     Active Substance: FUROSEMIDE
     Route: 048
  3. PAXIL [Concomitant]
     Active Substance: PAROXETINE HYDROCHLORIDE
     Route: 048
  4. POTASSIUM [Concomitant]
     Active Substance: POTASSIUM
     Route: 048
  5. FLOLAN DILVENT [Concomitant]
     Route: 042
  6. LANOXIN [Concomitant]
     Active Substance: DIGOXIN
     Route: 048
  7. FLOLAN [Concomitant]
     Active Substance: EPOPROSTENOL SODIUM
     Route: 042
  8. OXYGEN. [Concomitant]
     Active Substance: OXYGEN
     Dosage: UD
     Route: 055

REACTIONS (1)
  - Fluid retention [Unknown]
